FAERS Safety Report 15990440 (Version 1)
Quarter: 2019Q1

REPORT INFORMATION
  Report Type: Report from Study
  Country: US (occurrence: US)
  Receive Date: 20190221
  Receipt Date: 20190221
  Transmission Date: 20190418
  Serious: Yes (Other)
  Sender: FDA-Public Use
  Company Number: US-MYLANLABS-2019M1016132

PATIENT

DRUGS (2)
  1. TRIAMCINOLONE [Suspect]
     Active Substance: TRIAMCINOLONE
     Indication: DIABETIC RETINOPATHY
  2. TRIAMCINOLONE [Suspect]
     Active Substance: TRIAMCINOLONE
     Indication: DIABETIC RETINAL OEDEMA
     Dosage: ADMINISTERED WITHOUT ADDING PRESERVATIVES AT COMPOUNDING
     Route: 050

REACTIONS (4)
  - Product contamination microbial [Unknown]
  - Product compounding quality issue [Unknown]
  - Transmission of an infectious agent via product [Unknown]
  - Mycotic endophthalmitis [Not Recovered/Not Resolved]
